FAERS Safety Report 20782520 (Version 4)
Quarter: 2022Q2

REPORT INFORMATION
  Report Type: Report from Study
  Country: US (occurrence: US)
  Receive Date: 20220504
  Receipt Date: 20220623
  Transmission Date: 20220721
  Serious: Yes (Death, Hospitalization, Disabling, Other)
  Sender: FDA-Public Use
  Company Number: US-BRISTOL-MYERS SQUIBB COMPANY-2022-027585

PATIENT
  Age: 86 Year
  Sex: Female

DRUGS (21)
  1. LENALIDOMIDE [Suspect]
     Active Substance: LENALIDOMIDE
     Indication: Plasma cell myeloma
     Route: 048
     Dates: start: 20211108, end: 20211122
  2. DEXAMETHASONE [Suspect]
     Active Substance: DEXAMETHASONE
     Indication: Plasma cell myeloma
     Dosage: CYCLE 3
     Route: 048
     Dates: start: 20211108, end: 20211122
  3. IXAZOMIB [Suspect]
     Active Substance: IXAZOMIB
     Indication: Plasma cell myeloma
     Dosage: CYCLE 3
     Route: 048
     Dates: start: 20211108, end: 20211122
  4. DARATUMUMAB [Suspect]
     Active Substance: DARATUMUMAB
     Indication: Plasma cell myeloma
     Route: 042
     Dates: start: 20211108, end: 20211122
  5. VANCOMYCIN [Concomitant]
     Active Substance: VANCOMYCIN
     Indication: Clostridium difficile infection
     Dosage: EVERY 6 HOURS
     Route: 048
     Dates: start: 20211124, end: 20211203
  6. ACYCLOVIR [Concomitant]
     Active Substance: ACYCLOVIR
     Indication: Prophylaxis
     Dosage: Q4HRS WHILE AWAKE
     Route: 048
     Dates: start: 20210128
  7. LOSARTAN [Concomitant]
     Active Substance: LOSARTAN
     Indication: Hypertension
     Route: 048
     Dates: start: 20200923
  8. LOSARTAN [Concomitant]
     Active Substance: LOSARTAN
  9. MELATONIN [Concomitant]
     Active Substance: MELATONIN
     Indication: Insomnia
     Dosage: NIGHTLY PRN
     Route: 048
     Dates: start: 20210221
  10. MELATONIN [Concomitant]
     Active Substance: MELATONIN
  11. TRAMADOL [Concomitant]
     Active Substance: TRAMADOL
     Indication: Back pain
     Dosage: TID,PRN
     Route: 048
     Dates: start: 20210125
  12. TRAMADOL [Concomitant]
     Active Substance: TRAMADOL
  13. PENTAMIDINE [Concomitant]
     Active Substance: PENTAMIDINE
     Indication: Antifungal prophylaxis
     Dosage: INHALE 300 MG, Q 28 D, INHALED VIA NEBULIZER
     Route: 065
     Dates: start: 20211027
  14. PENTAMIDINE [Concomitant]
     Active Substance: PENTAMIDINE
  15. PROPRANOLOL [Concomitant]
     Active Substance: PROPRANOLOL HYDROCHLORIDE
     Indication: Hypertension
     Dosage: QD BEFORE BED
     Route: 048
     Dates: start: 20161109
  16. PROPRANOLOL [Concomitant]
     Active Substance: PROPRANOLOL HYDROCHLORIDE
  17. OMEPRAZOLE [Concomitant]
     Active Substance: OMEPRAZOLE
     Indication: Gastrooesophageal reflux disease
     Route: 048
     Dates: start: 20200310
  18. PEPTO-BISMOL [Concomitant]
     Active Substance: BISMUTH SUBSALICYLATE
     Indication: Diarrhoea
     Dosage: 30 ML, PRN
     Route: 048
     Dates: start: 20210415
  19. PEPTO-BISMOL [Concomitant]
     Active Substance: BISMUTH SUBSALICYLATE
  20. SINGULAIR [Concomitant]
     Active Substance: MONTELUKAST SODIUM
     Indication: Prophylaxis
     Dosage: DAY BEFORE/ DAY OF DARA INFU
     Route: 048
     Dates: start: 20210912
  21. SINGULAIR [Concomitant]
     Active Substance: MONTELUKAST SODIUM

REACTIONS (9)
  - Atrial fibrillation [Fatal]
  - Vomiting [Not Recovered/Not Resolved]
  - Pneumonia [Not Recovered/Not Resolved]
  - Diarrhoea [Recovered/Resolved]
  - Acute kidney injury [Recovered/Resolved]
  - Fatigue [Recovered/Resolved]
  - Nausea [Recovered/Resolved]
  - Acute respiratory failure [Unknown]
  - Urinary retention [Unknown]

NARRATIVE: CASE EVENT DATE: 20211123
